FAERS Safety Report 25214757 (Version 1)
Quarter: 2025Q2

REPORT INFORMATION
  Report Type: Spontaneous
  Country: US (occurrence: None)
  Receive Date: 20250418
  Receipt Date: 20250418
  Transmission Date: 20250716
  Serious: Yes (Disabling)
  Sender: FDA-CTU
  Company Number: None

PATIENT
  Age: 57 Year
  Sex: Male
  Weight: 94.5 kg

DRUGS (2)
  1. IBUPROFEN [Suspect]
     Active Substance: IBUPROFEN
     Indication: Pain
     Dosage: 90 CAPSULE(S) EVERY 8 HOURS ORAL ?
     Route: 048
     Dates: start: 20241124, end: 20250417
  2. IBUPROFEN [Suspect]
     Active Substance: IBUPROFEN
     Indication: Headache

REACTIONS (18)
  - Urticaria [None]
  - Swollen tongue [None]
  - Throat tightness [None]
  - Feeling hot [None]
  - Paraesthesia [None]
  - Pruritus [None]
  - Vomiting [None]
  - Nervousness [None]
  - Skin discolouration [None]
  - Skin ulcer [None]
  - Dyspnoea [None]
  - Anxiety [None]
  - Stress [None]
  - Insomnia [None]
  - Gastrooesophageal reflux disease [None]
  - Dizziness [None]
  - Headache [None]
  - Disturbance in attention [None]

NARRATIVE: CASE EVENT DATE: 20241129
